FAERS Safety Report 10575061 (Version 3)
Quarter: 2014Q4

REPORT INFORMATION
  Report Type: Report from Study
  Country: US (occurrence: US)
  Receive Date: 20141111
  Receipt Date: 20141119
  Transmission Date: 20150529
  Serious: No
  Sender: FDA-Public Use
  Company Number: US-AMGEN-USASL2014083826

PATIENT
  Age: 50 Year
  Sex: Male

DRUGS (2)
  1. ENBREL [Suspect]
     Active Substance: ETANERCEPT
     Indication: RHEUMATOID ARTHRITIS
     Dosage: 50 MG, QWK
     Route: 065
     Dates: start: 20141011
  2. ENBREL [Suspect]
     Active Substance: ETANERCEPT
     Indication: PSORIATIC ARTHROPATHY

REACTIONS (13)
  - Myalgia [Recovering/Resolving]
  - Oropharyngeal pain [Not Recovered/Not Resolved]
  - Confusional state [Recovering/Resolving]
  - Asthenia [Recovering/Resolving]
  - Pruritus generalised [Recovering/Resolving]
  - Herpes zoster [Not Recovered/Not Resolved]
  - Fatigue [Recovering/Resolving]
  - Coating in mouth [Not Recovered/Not Resolved]
  - Muscular weakness [Recovering/Resolving]
  - Skin exfoliation [Recovering/Resolving]
  - Hyperhidrosis [Recovering/Resolving]
  - Oral mucosal blistering [Recovered/Resolved]
  - Oral herpes [Recovering/Resolving]

NARRATIVE: CASE EVENT DATE: 20141024
